FAERS Safety Report 6359504-7 (Version None)
Quarter: 2009Q3

REPORT INFORMATION
  Report Type: 
  Country: None (occurrence: None)
  Receive Date: 20090917
  Receipt Date: 20090914
  Transmission Date: 20100115
  Serious: Yes (Hospitalization)
  Sender: FDA-Public Use
  Company Number: FR-WYE-G04428509

PATIENT
  Sex: Female

DRUGS (13)
  1. TAZOCILLINE [Suspect]
     Dosage: UNKNOWN
     Route: 042
     Dates: start: 20090722, end: 20090724
  2. FOZITEC [Concomitant]
     Dosage: UNKNOWN
     Route: 048
  3. CARDENSIEL [Concomitant]
     Dosage: UNKNOWN
     Route: 048
  4. LASIX [Concomitant]
     Dosage: 40 MG STRENGTH; DOSE UNKNOWN
     Route: 048
  5. KARDEGIC [Concomitant]
     Dosage: 75 MG STRENGTH; DOSE UNKNOWN
     Route: 048
  6. CLAMOXYL [Concomitant]
     Indication: URINARY TRACT INFECTION ENTEROCOCCAL
     Dosage: UNKNOWN
     Dates: start: 20090701
  7. ALLOPURINOL [Concomitant]
     Dosage: 100 MG STRENGTH; DOSE UNKNOWN
     Route: 048
  8. LEVOTHYROXINE SODIUM [Concomitant]
     Dosage: 100 UG STRENGTH; DOSE UNKNOWN
     Route: 048
  9. AMLODIPINE [Concomitant]
     Dosage: UNKNOWN
     Route: 048
  10. SPECIAFOLDINE [Concomitant]
     Dosage: UNKNOWN
     Route: 048
  11. STILNOX [Concomitant]
     Dosage: UNKNOWN
     Route: 048
  12. ZYVOXID [Suspect]
     Dosage: UNKNOWN
     Dates: start: 20090722, end: 20090724
  13. INIPOMP [Concomitant]
     Dosage: 20 MG STRENGTH; DOSE UNKNOWN
     Route: 048

REACTIONS (5)
  - ACUTE GENERALISED EXANTHEMATOUS PUSTULOSIS [None]
  - BACTERIAL PYELONEPHRITIS [None]
  - CONDITION AGGRAVATED [None]
  - SEPTIC SHOCK [None]
  - URINARY TRACT INFECTION ENTEROCOCCAL [None]
